FAERS Safety Report 25437603 (Version 2)
Quarter: 2025Q3

REPORT INFORMATION
  Report Type: Spontaneous
  Country: EU (occurrence: EU)
  Receive Date: 20250616
  Receipt Date: 20250709
  Transmission Date: 20251020
  Serious: No
  Sender: ASTELLAS
  Company Number: EU-ASTELLAS-2025-AER-031053

PATIENT
  Sex: Female

DRUGS (1)
  1. VEOZAH [Suspect]
     Active Substance: FEZOLINETANT
     Indication: Product used for unknown indication
     Route: 065

REACTIONS (3)
  - Infection [Recovering/Resolving]
  - Hepatic enzyme increased [Recovering/Resolving]
  - Platelet count decreased [Recovering/Resolving]
